FAERS Safety Report 4431058-1 (Version None)
Quarter: 2004Q3

REPORT INFORMATION
  Report Type: 
  Country: None (occurrence: None)
  Receive Date: 20040816
  Receipt Date: 20040729
  Transmission Date: 20050211
  Serious: Yes (Death, Hospitalization)
  Sender: FDA-Public Use
  Company Number: F01200401298

PATIENT
  Age: 75 Year
  Sex: Male

DRUGS (8)
  1. (OXALIPLATIN) - SOLUTION - 130 MG/M2 [Suspect]
     Indication: COLON CANCER
     Dosage: 231 MG Q3W INTRAVENOUS NOS
     Route: 042
     Dates: start: 20040506, end: 20040506
  2. CAPECITABINE - TABLET - 1800 MG [Suspect]
     Dosage: 1800 MG DAILY PER ORAL FROM D1 TO D15 ORAL
     Route: 048
     Dates: start: 20040506, end: 20040520
  3. FERROUS GLUCONATE [Concomitant]
  4. ONDANSETRON (ONDANSETRON HYDROCHLORIDE) [Concomitant]
  5. PROCHLORPERAZINE [Concomitant]
  6. IMODIUM [Concomitant]
  7. SULCRATE (SUCRALFATE) [Concomitant]
  8. INSULIN [Concomitant]

REACTIONS (17)
  - ACIDOSIS [None]
  - ASTHENIA [None]
  - BLOOD POTASSIUM DECREASED [None]
  - CARDIAC ARREST [None]
  - CHEST X-RAY ABNORMAL [None]
  - DEEP VEIN THROMBOSIS [None]
  - ENTERITIS [None]
  - FIBRIN D DIMER INCREASED [None]
  - HYPERGLYCAEMIA [None]
  - HYPOTENSION [None]
  - INTERNATIONAL NORMALISED RATIO INCREASED [None]
  - INTESTINAL OBSTRUCTION [None]
  - INTESTINAL PERFORATION [None]
  - PCO2 DECREASED [None]
  - SEPSIS [None]
  - WEIGHT DECREASED [None]
  - WHITE BLOOD CELL COUNT DECREASED [None]
